FAERS Safety Report 17114293 (Version 1)
Quarter: 2019Q4

REPORT INFORMATION
  Report Type: Spontaneous
  Country: ES (occurrence: ES)
  Receive Date: 20191205
  Receipt Date: 20191205
  Transmission Date: 20200122
  Serious: Yes (Death, Hospitalization, Other)
  Sender: FDA-Public Use
  Company Number: ES-AUROBINDO-AUR-APL-2019-103060

PATIENT
  Age: 53 Year
  Sex: Male

DRUGS (2)
  1. CLOZAPINE. [Suspect]
     Active Substance: CLOZAPINE
     Indication: SCHIZOAFFECTIVE DISORDER
     Dosage: 500 MILLIGRAM, ONCE A DAY
     Route: 048
     Dates: start: 20181001, end: 20191030
  2. METAMIZOLE [Interacting]
     Active Substance: METAMIZOLE
     Indication: PAIN
     Dosage: 575 MILLIGRAM, ONCE A DAY
     Route: 048
     Dates: start: 20190301, end: 20191031

REACTIONS (3)
  - Pneumococcal sepsis [Fatal]
  - Agranulocytosis [Fatal]
  - Meningitis [Fatal]

NARRATIVE: CASE EVENT DATE: 20191030
